FAERS Safety Report 24013031 (Version 1)
Quarter: 2024Q2

REPORT INFORMATION
  Report Type: Report from Study
  Country: JP (occurrence: JP)
  Receive Date: 20240626
  Receipt Date: 20240626
  Transmission Date: 20240716
  Serious: Yes (Death)
  Sender: FDA-Public Use
  Company Number: JP-MTPC-MTPC2024-0012794

PATIENT
  Age: 70 Year
  Sex: Female
  Weight: 48.5 kg

DRUGS (7)
  1. VADADUSTAT [Suspect]
     Active Substance: VADADUSTAT
     Indication: Nephrogenic anaemia
     Dosage: 300 MILLIGRAM, QD
     Route: 048
     Dates: start: 20220613, end: 20220907
  2. VADADUSTAT [Suspect]
     Active Substance: VADADUSTAT
     Dosage: 450 MILLIGRAM, QD
     Route: 048
     Dates: start: 20220908, end: 20231207
  3. TENELIGLIPTIN HYDROBROMIDE HYDRATE [Suspect]
     Active Substance: TENELIGLIPTIN HYDROBROMIDE HYDRATE
     Indication: Illness
     Dosage: 40 MILLIGRAM, QD
     Route: 048
  4. ROXADUSTAT [Concomitant]
     Active Substance: ROXADUSTAT
     Indication: Nephrogenic anaemia
     Dosage: 70 MILLIGRAM, 3/WEEK
     Route: 048
     Dates: end: 20220610
  5. CILOSTAZOL [Concomitant]
     Active Substance: CILOSTAZOL
     Indication: Illness
     Dosage: 200 MILLIGRAM, QD
     Route: 048
  6. PRAVASTATIN SODIUM [Concomitant]
     Active Substance: PRAVASTATIN SODIUM
     Indication: Illness
     Dosage: 5 MILLIGRAM, QD
     Route: 048
  7. LANSOPRAZOLE [Concomitant]
     Active Substance: LANSOPRAZOLE
     Indication: Illness
     Dosage: 15 MILLIGRAM, QD
     Route: 048

REACTIONS (1)
  - Death [Fatal]
